FAERS Safety Report 6412771-3 (Version None)
Quarter: 2009Q4

REPORT INFORMATION
  Report Type: 
  Country: None (occurrence: None)
  Receive Date: 20091023
  Receipt Date: 20091021
  Transmission Date: 20100525
  Serious: Yes (Death, Other)
  Sender: FDA-Public Use
  Company Number: DE-BRISTOL-MYERS SQUIBB COMPANY-14826028

PATIENT
  Sex: Female

DRUGS (2)
  1. TAXOL [Suspect]
     Indication: BREAST CANCER
     Route: 065
  2. AVASTIN [Suspect]
     Indication: BREAST CANCER
     Route: 065

REACTIONS (3)
  - GASTRIC HAEMORRHAGE [None]
  - GASTRIC PERFORATION [None]
  - INTESTINAL PERFORATION [None]
